FAERS Safety Report 9300569 (Version 1)
Quarter: 2013Q2

REPORT INFORMATION
  Report Type: Spontaneous
  Country: US (occurrence: US)
  Receive Date: 20130521
  Receipt Date: 20130521
  Transmission Date: 20140414
  Serious: No
  Sender: FDA-Public Use
  Company Number: US-009507513-1305USA011890

PATIENT
  Age: 34 Year
  Sex: Male
  Weight: 75.74 kg

DRUGS (7)
  1. PEGINTRON [Suspect]
     Indication: PROPHYLAXIS
     Dosage: 120 MICROGRAM, QW
     Route: 058
  2. RIBASPHERE [Suspect]
  3. ADVAIR [Concomitant]
  4. MONTELUKAST [Concomitant]
  5. OMEPRAZOLE [Concomitant]
  6. ALBUTEROL [Concomitant]
  7. ALEVE [Concomitant]

REACTIONS (4)
  - Influenza like illness [Unknown]
  - Pyrexia [Unknown]
  - Headache [Unknown]
  - Abdominal pain [Unknown]
